FAERS Safety Report 4598216-7 (Version None)
Quarter: 2005Q1

REPORT INFORMATION
  Report Type: 
  Country: None (occurrence: None)
  Receive Date: 20050301
  Receipt Date: 20050301
  Transmission Date: 20050727
  Serious: No
  Sender: FDA-Public Use
  Company Number: None

PATIENT
  Age: 68 Year
  Sex: Female
  Weight: 80 kg

DRUGS (2)
  1. TOBRAMYCIN [Suspect]
     Indication: OSTEOMYELITIS
     Dates: start: 20050209
  2. CEFTAZIDIME [Concomitant]

REACTIONS (1)
  - HYPOACUSIS [None]
